FAERS Safety Report 5356564-7 (Version None)
Quarter: 2007Q2

REPORT INFORMATION
  Report Type: 
  Country: None (occurrence: None)
  Receive Date: 20070612
  Receipt Date: 20070527
  Transmission Date: 20071010
  Serious: Yes (Death, Life-Threatening, Hospitalization, Disabling)
  Sender: FDA-Public Use
  Company Number: 2005EU000625

PATIENT
  Age: 53 Year
  Sex: Male

DRUGS (16)
  1. TACROLIMUS [Suspect]
     Indication: LIVER TRANSPLANT
     Dosage: 4.00 MG, BID, IV BOLUS
     Route: 040
     Dates: start: 20040714, end: 20040717
  2. METHYLPREDNISOLONE [Suspect]
     Indication: LIVER TRANSPLANT
     Dosage: 250 MG,/D
     Dates: start: 20040714, end: 20040714
  3. ARTERENOL (NOREPINEPHRINE HYDROCHLORIDE) [Concomitant]
  4. PREDNISOLONE [Suspect]
     Indication: LIVER TRANSPLANT
     Dosage: 75.00 MG, UID/QD
     Dates: start: 20040715, end: 20040723
  5. MYCOPHENOLATE MOFETIL [Suspect]
     Indication: LIVER TRANSPLANT
     Dosage: 1000 MG, BID, IV NOS
     Route: 042
     Dates: start: 20040714, end: 20040728
  6. HYDROCORTISONE [Suspect]
     Indication: LIVER TRANSPLANT
     Dosage: 200 MG, UID/QD
     Dates: start: 20040722, end: 20040907
  7. ANTIBIOTICS [Concomitant]
  8. MERONEM (MEROPENEM) [Concomitant]
  9. CIPROFLOXACIN HCL [Concomitant]
  10. INSULIN (INSULIN) [Concomitant]
  11. SUFENTANIL (SUFENTANIL) [Concomitant]
  12. VFEND [Concomitant]
  13. VANCOMYCIN [Concomitant]
  14. URSO FALK [Concomitant]
  15. ANTITHROMBIN III (ANTITHROMBIN III) [Concomitant]
  16. TACROLIMUS [Suspect]
     Dosage: 1 MG, BID, ORAL
     Route: 048
     Dates: start: 20040717, end: 20040728

REACTIONS (19)
  - CARDIAC FAILURE [None]
  - COMPLICATIONS OF TRANSPLANTED LIVER [None]
  - CONTINUOUS HAEMODIAFILTRATION [None]
  - ENTEROCOCCAL INFECTION [None]
  - GASTRIC PERFORATION [None]
  - GENERAL PHYSICAL HEALTH DETERIORATION [None]
  - HEPATIC FAILURE [None]
  - HYPERGLYCAEMIA [None]
  - LARGE INTESTINE PERFORATION [None]
  - LIVER TRANSPLANT [None]
  - MULTI-ORGAN FAILURE [None]
  - PANCREATITIS NECROTISING [None]
  - PERITONITIS [None]
  - PNEUMONIA ASPIRATION [None]
  - PSEUDOMONAS INFECTION [None]
  - RESPIRATORY FAILURE [None]
  - SEPSIS [None]
  - STRESS ULCER [None]
  - SURGICAL PROCEDURE REPEATED [None]
